FAERS Safety Report 19519859 (Version 2)
Quarter: 2021Q3

REPORT INFORMATION
  Report Type: Report from Study
  Country: PE (occurrence: PE)
  Receive Date: 20210712
  Receipt Date: 20210722
  Transmission Date: 20211014
  Serious: Yes (Life-Threatening, Other)
  Sender: FDA-Public Use
  Company Number: NVSC2021PE155338

PATIENT
  Sex: Male

DRUGS (2)
  1. REVOLADE [Suspect]
     Active Substance: ELTROMBOPAG OLAMINE
     Indication: IMMUNE THROMBOCYTOPENIA
     Dosage: 50 MG, QD
     Route: 048
     Dates: start: 20180509
  2. NAPROXEN. [Concomitant]
     Active Substance: NAPROXEN
     Indication: TEETHING
     Route: 065

REACTIONS (8)
  - Deafness unilateral [Unknown]
  - Tinnitus [Unknown]
  - Hypoacusis [Unknown]
  - Pulpitis dental [Recovering/Resolving]
  - Ear discomfort [Unknown]
  - Platelet count decreased [Recovering/Resolving]
  - Platelet count increased [Unknown]
  - Dental caries [Unknown]
